FAERS Safety Report 5106554-4 (Version None)
Quarter: 2006Q3

REPORT INFORMATION
  Report Type: 
  Country: None (occurrence: None)
  Receive Date: 20060918
  Receipt Date: 20060818
  Transmission Date: 20061208
  Serious: Yes (Hospitalization)
  Sender: FDA-Public Use
  Company Number: FR-GLAXOSMITHKLINE-B0434653A

PATIENT
  Age: 28 Year
  Sex: Female

DRUGS (4)
  1. FORTUM [Suspect]
     Route: 042
     Dates: start: 20060804, end: 20060805
  2. FOSFOCINE [Concomitant]
     Route: 042
     Dates: end: 20060805
  3. AMIKLIN [Concomitant]
     Route: 042
     Dates: start: 20060804, end: 20060805
  4. LOVENOX [Concomitant]
     Route: 065

REACTIONS (3)
  - OVERDOSE [None]
  - PROTHROMBIN LEVEL DECREASED [None]
  - THROMBOCYTOPENIA [None]
